FAERS Safety Report 14985855 (Version 2)
Quarter: 2018Q2

REPORT INFORMATION
  Report Type: Not Available
  Country: US (occurrence: US)
  Receive Date: 20180607
  Receipt Date: 20180620
  Transmission Date: 20180711
  Serious: Yes (Life-Threatening, Hospitalization)
  Sender: FDA-Public Use
  Company Number: US-NEUROCRINE BIOSCIENCES INC.-2018NBI01625

PATIENT
  Age: 67 Year
  Sex: Male

DRUGS (14)
  1. INGREZZA [Suspect]
     Active Substance: VALBENAZINE
     Indication: DYSKINESIA
     Route: 048
     Dates: start: 20171019, end: 20171026
  2. BENZTROPINE. [Concomitant]
     Active Substance: BENZTROPINE
  3. DICYCLOMINE [Concomitant]
     Active Substance: DICYCLOMINE HYDROCHLORIDE
  4. DONEPEZIL. [Concomitant]
     Active Substance: DONEPEZIL
  5. INGREZZA [Suspect]
     Active Substance: VALBENAZINE
     Route: 048
     Dates: start: 20171027, end: 20180513
  6. FUROSEMIDE. [Concomitant]
     Active Substance: FUROSEMIDE
  7. ASPIRIN. [Concomitant]
     Active Substance: ASPIRIN
  8. CLOPIDOGREL [Concomitant]
     Active Substance: CLOPIDOGREL BISULFATE
  9. IBUPROFEN. [Concomitant]
     Active Substance: IBUPROFEN
  10. LAMICTAL [Concomitant]
     Active Substance: LAMOTRIGINE
  11. CENTRUM [Concomitant]
     Active Substance: VITAMINS
  12. POTASSIUM [Concomitant]
     Active Substance: POTASSIUM
  13. RISPERIDONE. [Concomitant]
     Active Substance: RISPERIDONE
  14. OMEPRAZOLE. [Concomitant]
     Active Substance: OMEPRAZOLE

REACTIONS (3)
  - Cardiac failure chronic [Recovering/Resolving]
  - Vision blurred [Not Recovered/Not Resolved]
  - Haemorrhagic stroke [Recovering/Resolving]

NARRATIVE: CASE EVENT DATE: 20180513
